FAERS Safety Report 13433701 (Version 2)
Quarter: 2017Q2

REPORT INFORMATION
  Report Type: Spontaneous
  Country: US (occurrence: US)
  Receive Date: 20170412
  Receipt Date: 20170502
  Transmission Date: 20170830
  Serious: No
  Sender: FDA-Public Use
  Company Number: US-SHIRE-US201708178

PATIENT
  Age: 12 Year
  Sex: Male

DRUGS (1)
  1. ELAPRASE [Suspect]
     Active Substance: IDURSULFASE
     Indication: MUCOPOLYSACCHARIDOSIS II
     Dosage: 18 MG, 1X/WEEK
     Route: 041
     Dates: start: 20160216

REACTIONS (5)
  - Chills [Unknown]
  - Pyrexia [Unknown]
  - Infusion related reaction [Unknown]
  - Heart rate increased [Unknown]
  - Tremor [Unknown]

NARRATIVE: CASE EVENT DATE: 20170322
